FAERS Safety Report 25786862 (Version 1)
Quarter: 2025Q3

REPORT INFORMATION
  Report Type: Report from Study
  Country: US (occurrence: US)
  Receive Date: 20250910
  Receipt Date: 20250910
  Transmission Date: 20251020
  Serious: Yes (Death, Hospitalization, Other)
  Sender: TAKEDA
  Company Number: US-TAKEDA-2024TUS007645

PATIENT
  Sex: Female

DRUGS (8)
  1. BRIGATINIB [Suspect]
     Active Substance: BRIGATINIB
     Indication: Neurofibromatosis
     Dosage: 180 MILLIGRAM, QD
  2. BRIGATINIB [Suspect]
     Active Substance: BRIGATINIB
     Indication: Cranial nerve neoplasm benign
     Dosage: 180 MILLIGRAM, QD
     Dates: start: 202309
  3. BRIGATINIB [Suspect]
     Active Substance: BRIGATINIB
     Dosage: 180 MILLIGRAM, QD
  4. AVASTIN [Concomitant]
     Active Substance: BEVACIZUMAB
  5. Cvs melatonin [Concomitant]
  6. VITAMIN D3 [Concomitant]
     Active Substance: CHOLECALCIFEROL
  7. DICYCLOMINE [Concomitant]
     Active Substance: DICYCLOMINE HYDROCHLORIDE
  8. TOPIRAMATE [Concomitant]
     Active Substance: TOPIRAMATE

REACTIONS (3)
  - Choking [Fatal]
  - Off label use [Unknown]
  - Dysphagia [Unknown]
